FAERS Safety Report 12397757 (Version 1)
Quarter: 2016Q2

REPORT INFORMATION
  Report Type: Spontaneous
  Country: DK (occurrence: DK)
  Receive Date: 20160524
  Receipt Date: 20160524
  Transmission Date: 20160815
  Serious: Yes (Hospitalization)
  Sender: FDA-Public Use
  Company Number: DK-ROCHE-1763167

PATIENT
  Age: 26 Year
  Sex: Male
  Weight: 65 kg

DRUGS (6)
  1. TRIMOPAN (DENMARK) [Concomitant]
     Indication: MOLLUSCUM CONTAGIOSUM
     Route: 065
  2. PEGASYS [Suspect]
     Active Substance: PEGINTERFERON ALFA-2A
     Indication: IMMUNE SYSTEM DISORDER
     Dosage: STRENGTH: 180 MCG/ML.
     Route: 058
     Dates: start: 20160317, end: 20160326
  3. ARANESP [Concomitant]
     Active Substance: DARBEPOETIN ALFA
     Indication: ANAEMIA
     Route: 065
  4. METRONIDAZOL [Concomitant]
     Active Substance: METRONIDAZOLE
     Indication: MOLLUSCUM CONTAGIOSUM
     Route: 065
  5. SURLID [Concomitant]
     Active Substance: ROXITHROMYCIN
     Indication: MOLLUSCUM CONTAGIOSUM
     Route: 065
  6. SULFAMETIZOL [Concomitant]
     Indication: MOLLUSCUM CONTAGIOSUM
     Route: 065

REACTIONS (2)
  - Cardiac failure [Not Recovered/Not Resolved]
  - Renal failure [Not Recovered/Not Resolved]

NARRATIVE: CASE EVENT DATE: 20160326
